FAERS Safety Report 15891730 (Version 1)
Quarter: 2019Q1

REPORT INFORMATION
  Report Type: Spontaneous
  Country: FR (occurrence: FR)
  Receive Date: 20190130
  Receipt Date: 20190130
  Transmission Date: 20190417
  Serious: No
  Sender: FDA-Public Use
  Company Number: FR-009507513-1901FRA007087

PATIENT
  Age: 80 Year
  Sex: Female

DRUGS (1)
  1. DIPROSONE [Suspect]
     Active Substance: BETAMETHASONE DIPROPIONATE
     Indication: INCORRECT ROUTE OF PRODUCT ADMINISTRATION
     Route: 047
     Dates: start: 20181114, end: 20181114

REACTIONS (2)
  - Eye pain [Not Recovered/Not Resolved]
  - Incorrect route of product administration [Recovered/Resolved]

NARRATIVE: CASE EVENT DATE: 20181114
